FAERS Safety Report 6674736-6 (Version None)
Quarter: 2010Q1

REPORT INFORMATION
  Report Type: 
  Country: None (occurrence: None)
  Receive Date: 20100329
  Receipt Date: 20090603
  Transmission Date: 20100710
  Serious: Yes (Hospitalization)
  Sender: FDA-Public Use
  Company Number: 2009192531

PATIENT
  Age: 24 Year
  Sex: Female

DRUGS (3)
  1. GEODON (ZIPRASIDONE HCL) UNKNOWN [Suspect]
     Indication: BIPOLAR I DISORDER
     Dosage: 20 MG, 2X/DAY
     Dates: start: 20090303, end: 20090310
  2. XANAX [Concomitant]
  3. SEROQUEL [Concomitant]

REACTIONS (1)
  - EXFOLIATIVE RASH [None]
